FAERS Safety Report 5533754-1 (Version None)
Quarter: 2007Q4

REPORT INFORMATION
  Report Type: 
  Country: None (occurrence: None)
  Receive Date: 20071204
  Receipt Date: 20071108
  Transmission Date: 20080405
  Serious: No
  Sender: FDA-Public Use
  Company Number: US-BOEHRINGER INGELHEIM PHARMACEUTICALS, INC.-2007-BP-23155BP

PATIENT
  Sex: Female

DRUGS (6)
  1. AGGRENOX [Suspect]
     Indication: TRANSIENT ISCHAEMIC ATTACK
     Route: 048
     Dates: start: 20071019, end: 20071019
  2. AGGRENOX [Suspect]
     Indication: CEREBROVASCULAR ACCIDENT PROPHYLAXIS
  3. SYNTHROID [Concomitant]
  4. PLAVIX [Concomitant]
  5. AVAPRO [Concomitant]
  6. VYTORIN [Concomitant]

REACTIONS (1)
  - INFLUENZA LIKE ILLNESS [None]
